FAERS Safety Report 8801498 (Version 3)
Quarter: 2012Q4

REPORT INFORMATION
  Report Type: 
  Country: SE (occurrence: SE)
  Receive Date: 20120921
  Receipt Date: 20121129
  Transmission Date: 20130627
  Serious: Yes (Other)
  Sender: FDA-Public Use
  Company Number: SE-JNJFOC-20120907740

PATIENT
  Age: 9 Year
  Sex: Female

DRUGS (1)
  1. IPREN [Suspect]
     Indication: VIRAL INFECTION
     Route: 065
     Dates: end: 20091124

REACTIONS (1)
  - Oculomucocutaneous syndrome [Unknown]
